FAERS Safety Report 10367143 (Version 1)
Quarter: 2014Q3

REPORT INFORMATION
  Report Type: Spontaneous
  Country: RU (occurrence: RU)
  Receive Date: 20140807
  Receipt Date: 20140807
  Transmission Date: 20150326
  Serious: No
  Sender: FDA-Public Use
  Company Number: RU-UCBSA-2014007834

PATIENT
  Sex: Male

DRUGS (9)
  1. RELANIUM [Concomitant]
     Indication: CONVULSION
     Dosage: UNK
     Route: 042
  2. PROPOFOL. [Concomitant]
     Active Substance: PROPOFOL
     Indication: CONVULSION
     Dosage: UNK
  3. KEPPRA [Suspect]
     Active Substance: LEVETIRACETAM
     Indication: EPILEPSY
     Dosage: 500-1000MG, 3X/DAY (TID), VIA NASOGASTRIC TUBE
     Dates: start: 20131127, end: 2013
  4. KEPPRA [Suspect]
     Active Substance: LEVETIRACETAM
     Indication: OFF LABEL USE
  5. KEPPRA [Suspect]
     Active Substance: LEVETIRACETAM
     Indication: STATUS EPILEPTICUS
  6. RELANIUM [Concomitant]
     Indication: GENERALISED TONIC-CLONIC SEIZURE
  7. PROPOFOL. [Concomitant]
     Active Substance: PROPOFOL
     Indication: GENERALISED TONIC-CLONIC SEIZURE
  8. CONVULEX [Concomitant]
     Active Substance: CARBAMAZEPINE OR VALPROIC ACID
     Indication: STATUS EPILEPTICUS
     Dosage: 3000 MG, ONCE DAILY (QD)
     Route: 042
     Dates: start: 20131127, end: 20131212
  9. DORMICUM [Concomitant]
     Active Substance: MIDAZOLAM\MIDAZOLAM HYDROCHLORIDE
     Dosage: UNK
     Dates: start: 20131128, end: 20131203

REACTIONS (2)
  - Thrombocytopenia [Unknown]
  - Off label use [Unknown]

NARRATIVE: CASE EVENT DATE: 2013
